FAERS Safety Report 14197121 (Version 2)
Quarter: 2017Q4

REPORT INFORMATION
  Report Type: Report from Study
  Country: IT (occurrence: IT)
  Receive Date: 20171116
  Receipt Date: 20171208
  Transmission Date: 20180321
  Serious: Yes (Hospitalization)
  Sender: FDA-Public Use
  Company Number: IT-MYLANLABS-2017M1072104

PATIENT
  Age: 27 Year
  Sex: Female

DRUGS (2)
  1. ZINC. [Concomitant]
     Active Substance: ZINC
     Indication: SUPPLEMENTATION THERAPY
     Dosage: 50 MG, TID
  2. BRUFEN [Suspect]
     Active Substance: IBUPROFEN
     Indication: HEADACHE
     Dosage: 2 DF, QD
     Route: 048
     Dates: start: 20171010, end: 20171017

REACTIONS (4)
  - Renal failure [Unknown]
  - Jaundice [Unknown]
  - Malaise [Unknown]
  - Chromaturia [Unknown]

NARRATIVE: CASE EVENT DATE: 20171017
